FAERS Safety Report 8533793-2 (Version None)
Quarter: 2012Q3

REPORT INFORMATION
  Report Type: 
  Country: None (occurrence: None)
  Receive Date: 20120711
  Receipt Date: 20110513
  Transmission Date: 20120928
  Serious: No
  Sender: FDA-Public Use
  Company Number: PP11-012

PATIENT
  Age: 36 Year
  Sex: Male
  Weight: 97.5234 kg

DRUGS (2)
  1. ALLERGENIC EXTRACTS-PATIENT TREATMENT SET [Suspect]
     Indication: RHINITIS ALLERGIC
     Dosage: 0.50CC INTRADERMALLY
     Route: 023
     Dates: start: 20110513
  2. ALLERGENIC EXTRACTS-PATIENT TREATMENT SET [Suspect]
     Indication: RHINITIS ALLERGIC
     Dosage: 0.5CC INTRADERMALLY
     Route: 023
     Dates: start: 20110513

REACTIONS (5)
  - TREMOR [None]
  - WHEEZING [None]
  - ERYTHEMA [None]
  - DIZZINESS [None]
  - COLD SWEAT [None]
